FAERS Safety Report 18575403 (Version 1)
Quarter: 2020Q4

REPORT INFORMATION
  Report Type: Spontaneous
  Country: DE (occurrence: DE)
  Receive Date: 20201203
  Receipt Date: 20201203
  Transmission Date: 20210114
  Serious: Yes (Hospitalization)
  Sender: FDA-Public Use
  Company Number: DE-MYLANLABS-2020M1098217

PATIENT
  Age: 65 Year
  Sex: Female

DRUGS (7)
  1. METOPROLOL. [Suspect]
     Active Substance: METOPROLOL
     Indication: PRODUCT USED FOR UNKNOWN INDICATION
     Dosage: 23.75 MILLIGRAM (0.5-0-0-0)
     Route: 048
  2. ACETYLSALICYLSAEURE [Concomitant]
     Active Substance: ASPIRIN
     Dosage: 100 MILLIGRAM (1-0-0-0)
     Route: 048
  3. CLONIDIN [Concomitant]
     Active Substance: CLONIDINE
     Dosage: 0.075 MILLIGRAM (1-0-0-0)
     Route: 048
  4. RAMIPRIL. [Concomitant]
     Active Substance: RAMIPRIL
     Dosage: 5 MILLIGRAM (1-0-1-0)
     Route: 048
  5. THYRONAJOD [Concomitant]
     Active Substance: LEVOTHYROXINE SODIUM\POTASSIUM IODIDE
     Dosage: UNK (0.05|0.15 MG, 1-0-0-0)
     Route: 048
  6. EZETIMIBE. [Concomitant]
     Active Substance: EZETIMIBE
     Dosage: 10 MILLIGRAM (1-0-0-0)
     Route: 048
  7. CLOPIDOGREL [Concomitant]
     Active Substance: CLOPIDOGREL BISULFATE
     Dosage: 75 MILLIGRAM (1-0-0-0)
     Route: 048

REACTIONS (6)
  - Hypertension [Unknown]
  - General physical health deterioration [Unknown]
  - Abdominal pain [Unknown]
  - Dry mouth [Unknown]
  - Malaise [Unknown]
  - Product dose omission issue [Unknown]
